FAERS Safety Report 22321848 (Version 1)
Quarter: 2023Q2

REPORT INFORMATION
  Report Type: Spontaneous
  Country: CN (occurrence: None)
  Receive Date: 20230516
  Receipt Date: 20230516
  Transmission Date: 20230722
  Serious: Yes (Other)
  Sender: FDA-Public Use
  Company Number: CN-ROCHE-3348899

PATIENT
  Age: 44 Year
  Sex: Male

DRUGS (10)
  1. MABTHERA [Suspect]
     Active Substance: RITUXIMAB
     Indication: Marginal zone lymphoma
     Dosage: TREATMENT ON 02-DEC-2016, 28-DEC-2016
     Route: 041
  2. MABTHERA [Suspect]
     Active Substance: RITUXIMAB
     Dosage: R-CHOP, TREATMENT ON 18-JAN-2017, 17-MAR-2017
     Route: 041
  3. MABTHERA [Suspect]
     Active Substance: RITUXIMAB
     Dosage: BR, TREATMENT ON 19-MAY-2021, 24-JUN-2021, 28-JUL-2021, 08-SEP-2021
     Route: 041
  4. MABTHERA [Suspect]
     Active Substance: RITUXIMAB
     Route: 041
     Dates: start: 20220720
  5. CYCLOPHOSPHAMIDE [Concomitant]
     Active Substance: CYCLOPHOSPHAMIDE
  6. EPIRUBICIN [Concomitant]
     Active Substance: EPIRUBICIN
  7. VINDESINE [Concomitant]
     Active Substance: VINDESINE
  8. PREDNISONE [Concomitant]
     Active Substance: PREDNISONE
  9. BENDAMUSTINE [Concomitant]
     Active Substance: BENDAMUSTINE
  10. ORELABRUTINIB [Concomitant]
     Active Substance: ORELABRUTINIB

REACTIONS (3)
  - Off label use [Unknown]
  - Pneumonia [Unknown]
  - Herpes zoster [Unknown]
